FAERS Safety Report 12820488 (Version 1)
Quarter: 2016Q4

REPORT INFORMATION
  Report Type: Spontaneous
  Country: US (occurrence: US)
  Receive Date: 20161006
  Receipt Date: 20161006
  Transmission Date: 20170207
  Serious: No
  Sender: FDA-Public Use
  Company Number: US-INDIVIOR LIMITED-INDV-088203-2016

PATIENT
  Sex: Female

DRUGS (7)
  1. SUBOXONE [Suspect]
     Active Substance: BUPRENORPHINE HYDROCHLORIDE\NALOXONE HYDROCHLORIDE
     Indication: PAIN
     Dosage: VARIOUS TAPERING DOSES, DAILY
     Route: 060
     Dates: end: 201509
  2. SUBOXONE [Suspect]
     Active Substance: BUPRENORPHINE HYDROCHLORIDE\NALOXONE HYDROCHLORIDE
     Indication: PAIN
     Dosage: 4MG, TWICE A DAY
     Route: 060
     Dates: start: 201601
  3. CLONOPIN [Concomitant]
     Active Substance: CLONAZEPAM
     Indication: ANXIETY
     Dosage: 1.25MG, DAILY
     Route: 048
  4. SUBOXONE [Suspect]
     Active Substance: BUPRENORPHINE HYDROCHLORIDE\NALOXONE HYDROCHLORIDE
     Indication: PAIN
     Dosage: 4 MG, QD FOR ABOUT 3 YEARS
     Route: 060
  5. BUPRENORPHINE GENERIC TAB [Suspect]
     Active Substance: BUPRENORPHINE
     Indication: SUBSTANCE USE
     Dosage: VARIOUS PIECES, DAILY
     Route: 060
     Dates: start: 2015, end: 2015
  6. SUBOXONE [Suspect]
     Active Substance: BUPRENORPHINE HYDROCHLORIDE\NALOXONE HYDROCHLORIDE
     Dosage: VARIOUS TAPERING DOSES, DAILY
     Route: 060
  7. SUBOXONE [Suspect]
     Active Substance: BUPRENORPHINE HYDROCHLORIDE\NALOXONE HYDROCHLORIDE
     Indication: PAIN
     Dosage: 6 MG DAILY
     Route: 060
     Dates: start: 2009

REACTIONS (9)
  - Malaise [Unknown]
  - Intentional underdose [Recovered/Resolved]
  - Hepatitis C [Not Recovered/Not Resolved]
  - Animal bite [Recovered/Resolved]
  - Product preparation error [Not Recovered/Not Resolved]
  - Limb injury [Recovered/Resolved]
  - Substance abuse [Recovered/Resolved]
  - Off label use [Not Recovered/Not Resolved]
  - Intentional product misuse [Not Recovered/Not Resolved]

NARRATIVE: CASE EVENT DATE: 2009
